FAERS Safety Report 4734453-6 (Version None)
Quarter: 2005Q3

REPORT INFORMATION
  Report Type: 
  Country: None (occurrence: None)
  Receive Date: 20050804
  Receipt Date: 20050726
  Transmission Date: 20060218
  Serious: Yes (Other)
  Sender: FDA-Public Use
  Company Number: BR-ROCHE-412155

PATIENT
  Age: 30 Year
  Sex: Female
  Weight: 58 kg

DRUGS (10)
  1. CLONAZEPAM [Suspect]
     Indication: INSOMNIA
     Dosage: THERAPY DISCONTINUED AT AN UNSPECIFIED DATE.
     Route: 048
     Dates: start: 20040315
  2. CLONAZEPAM [Suspect]
     Route: 048
     Dates: start: 20040815
  3. CLONAZEPAM [Suspect]
     Route: 048
     Dates: start: 20040915
  4. CLONAZEPAM [Suspect]
     Route: 048
  5. CLONAZEPAM [Suspect]
     Route: 048
  6. CLONAZEPAM [Suspect]
     Route: 048
     Dates: start: 20050723
  7. MELLARIL [Concomitant]
     Indication: INSOMNIA
     Dosage: TDD CHANGED FROM 400 MG TO 300 MG ON 23 JULY 2005.
     Route: 048
  8. AKINETON [Concomitant]
     Indication: INSOMNIA
     Route: 048
  9. DALMADORM [Concomitant]
     Indication: INSOMNIA
     Route: 048
  10. TOPAMAX [Concomitant]
     Indication: INSOMNIA
     Route: 048

REACTIONS (1)
  - RENAL FAILURE [None]
